FAERS Safety Report 20759256 (Version 1)
Quarter: 2022Q2

REPORT INFORMATION
  Report Type: Spontaneous
  Country: US (occurrence: US)
  Receive Date: 20220427
  Receipt Date: 20220427
  Transmission Date: 20220721
  Serious: No
  Sender: FDA-Public Use
  Company Number: US-BioHaven Pharmaceuticals-2022BHV000084

PATIENT
  Age: 54 Year
  Sex: Female

DRUGS (1)
  1. NURTEC ODT [Suspect]
     Active Substance: RIMEGEPANT SULFATE
     Indication: Product used for unknown indication
     Dosage: PATIENT ONLY TOOK NURTEC ONE TIME, DIRECTION FOR THE PATIENT WAS TO TAKE THE NURTEC AT ONSET OF MIGR
     Route: 065

REACTIONS (2)
  - Somnolence [Unknown]
  - Adverse event [Unknown]
